FAERS Safety Report 23133880 (Version 1)
Quarter: 2023Q4

REPORT INFORMATION
  Report Type: Spontaneous
  Country: US (occurrence: None)
  Receive Date: 20231031
  Receipt Date: 20231031
  Transmission Date: 20240110
  Serious: Yes (Other)
  Sender: FDA-Public Use
  Company Number: None

PATIENT
  Sex: Female

DRUGS (2)
  1. ENBREL [Suspect]
     Active Substance: ETANERCEPT
     Indication: Psoriatic arthropathy
     Dates: start: 20191205
  2. KRILL OIL CAP 1000MG [Concomitant]

REACTIONS (4)
  - Surgery [None]
  - Intentional dose omission [None]
  - Pain [None]
  - Insurance issue [None]
